FAERS Safety Report 5365939-1 (Version None)
Quarter: 2007Q2

REPORT INFORMATION
  Report Type: 
  Country: None (occurrence: None)
  Receive Date: 20070611
  Receipt Date: 20061226
  Transmission Date: 20071010
  Serious: Yes (Hospitalization, Other)
  Sender: FDA-Public Use
  Company Number: USA-2006-0026043

PATIENT
  Age: 35 Year
  Sex: Female

DRUGS (3)
  1. OXYCONTIN [Suspect]
     Indication: DRUG ABUSER
     Dosage: TID
  2. XANAX [Suspect]
     Indication: DRUG ABUSER
  3. COCAINE (COCAINE) [Suspect]
     Indication: DRUG ABUSER
     Dosage: NASAL
     Route: 045

REACTIONS (1)
  - SUBSTANCE ABUSE [None]
